FAERS Safety Report 5276864-9 (Version None)
Quarter: 2007Q1

REPORT INFORMATION
  Report Type: 
  Country: None (occurrence: None)
  Receive Date: 20070327
  Receipt Date: 20070315
  Transmission Date: 20070707
  Serious: Yes (Hospitalization)
  Sender: FDA-Public Use
  Company Number: HQWYE998307MAR07

PATIENT
  Sex: Female

DRUGS (4)
  1. ENBREL [Suspect]
     Indication: RHEUMATOID ARTHRITIS
     Route: 058
     Dates: start: 20050414, end: 20070202
  2. LORAZEPAM [Concomitant]
     Route: 048
     Dates: start: 20010824
  3. SURGAM [Concomitant]
  4. PREDNISOLONE [Concomitant]
     Indication: RHEUMATOID ARTHRITIS
     Route: 048
     Dates: start: 20010824, end: 20050621

REACTIONS (5)
  - BACTERIAL INFECTION [None]
  - PNEUMONIA [None]
  - RESPIRATORY FAILURE [None]
  - SERRATIA INFECTION [None]
  - STAPHYLOCOCCAL INFECTION [None]
